FAERS Safety Report 9158637 (Version 3)
Quarter: 2013Q1

REPORT INFORMATION
  Report Type: Spontaneous
  Country: JP (occurrence: JP)
  Receive Date: 20130312
  Receipt Date: 20130326
  Transmission Date: 20140127
  Serious: Yes (Hospitalization, Other)
  Sender: FDA-Public Use
  Company Number: PHHY2013JP022845

PATIENT
  Age: 34 Year
  Sex: Female

DRUGS (1)
  1. APRESOLINE [Suspect]
     Indication: GESTATIONAL HYPERTENSION

REACTIONS (12)
  - Subarachnoid haemorrhage [Recovering/Resolving]
  - Posterior reversible encephalopathy syndrome [Recovering/Resolving]
  - HELLP syndrome [Recovering/Resolving]
  - Hepatic enzyme abnormal [Unknown]
  - Platelet count decreased [Unknown]
  - Eclampsia [Recovering/Resolving]
  - Convulsion [Unknown]
  - Vasogenic cerebral oedema [Unknown]
  - Syncope [Unknown]
  - Anaemia [Unknown]
  - Blood lactate dehydrogenase increased [Unknown]
  - Maternal exposure during pregnancy [Unknown]
